FAERS Safety Report 6750110-9 (Version None)
Quarter: 2010Q2

REPORT INFORMATION
  Report Type: 
  Country: None (occurrence: None)
  Receive Date: 20100601
  Receipt Date: 20100528
  Transmission Date: 20101027
  Serious: Yes (Death, Other)
  Sender: FDA-Public Use
  Company Number: PHHY2010JP30256

PATIENT
  Sex: Male

DRUGS (3)
  1. AFINITOR [Suspect]
     Indication: METASTATIC RENAL CELL CARCINOMA
     Dosage: 10 MG DAILY
     Route: 048
     Dates: start: 20100416
  2. WARFARIN [Suspect]
     Route: 048
  3. SUTENT [Concomitant]
     Indication: METASTATIC RENAL CELL CARCINOMA
     Dosage: 600 MG
     Route: 048
     Dates: start: 20100127, end: 20100402

REACTIONS (5)
  - BLOOD CREATININE INCREASED [None]
  - BLOOD UREA INCREASED [None]
  - CEREBRAL HAEMORRHAGE [None]
  - DISSEMINATED INTRAVASCULAR COAGULATION [None]
  - EPISTAXIS [None]
